FAERS Safety Report 10251112 (Version 1)
Quarter: 2014Q2

REPORT INFORMATION
  Report Type: Spontaneous
  Country: BE (occurrence: BE)
  Receive Date: 20140620
  Receipt Date: 20140620
  Transmission Date: 20141212
  Serious: Yes (Other)
  Sender: FDA-Public Use
  Company Number: BE-BAXTER-2014BAX031339

PATIENT
  Age: 39 Year
  Sex: Male

DRUGS (3)
  1. KIOVIG 100 MG/ML, SOLUTION POUR PERFUSION (1 G/10 ML) [Suspect]
     Indication: LICHEN MYXOEDEMATOSUS
     Route: 042
  2. DEXAMETHASONE [Suspect]
     Indication: LICHEN MYXOEDEMATOSUS
     Route: 065
  3. THALIDOMIDE [Suspect]
     Indication: LICHEN MYXOEDEMATOSUS
     Route: 065

REACTIONS (1)
  - Myocardial infarction [Recovering/Resolving]
